FAERS Safety Report 12733117 (Version 1)
Quarter: 2016Q3

REPORT INFORMATION
  Report Type: Spontaneous
  Country: CA (occurrence: CA)
  Receive Date: 20160912
  Receipt Date: 20160912
  Transmission Date: 20161109
  Serious: Yes (Other)
  Sender: FDA-Public Use
  Company Number: CA-ALLERGAN-1668346US

PATIENT
  Age: 45 Year
  Sex: Female
  Weight: 73.92 kg

DRUGS (3)
  1. FERAMAX [Concomitant]
     Active Substance: IRON\POLYSACCHARIDES
     Indication: PRODUCT USED FOR UNKNOWN INDICATION
     Dosage: UNK
  2. FIBRISTAL [Suspect]
     Active Substance: ULIPRISTAL
     Indication: UTERINE LEIOMYOMA
     Dosage: 1 TABLET, QD
  3. FIBRISTAL [Suspect]
     Active Substance: ULIPRISTAL
     Dosage: 1 TABLET, QD

REACTIONS (1)
  - Uterine leiomyoma [Not Recovered/Not Resolved]
